FAERS Safety Report 8476215 (Version 2)
Quarter: 2013Q3

REPORT INFORMATION
  Report Type: Report from Study
  Country: ZM (occurrence: ZM)
  Receive Date: 20120326
  Receipt Date: 20130913
  Transmission Date: 20140515
  Serious: Yes (Death, Life-Threatening)
  Sender: FDA-Public Use
  Company Number: ZM-ABBOTT-12P-189-0917925-00

PATIENT
  Age: 46 Year
  Sex: Male

DRUGS (2)
  1. ALUVIA TABLETS [Suspect]
     Indication: HIV INFECTION
     Route: 048
     Dates: start: 20110429, end: 20120319
  2. RALTEGRAVIR [Concomitant]
     Indication: HIV INFECTION
     Dates: start: 20110429, end: 20120319

REACTIONS (5)
  - Hepatic encephalopathy [Fatal]
  - Hepatocellular carcinoma [Fatal]
  - Sepsis [Fatal]
  - Jaundice acholuric [Not Recovered/Not Resolved]
  - Anaemia [Not Recovered/Not Resolved]
